FAERS Safety Report 5521783-3 (Version None)
Quarter: 2007Q4

REPORT INFORMATION
  Report Type: 
  Country: None (occurrence: None)
  Receive Date: 20071120
  Receipt Date: 20071114
  Transmission Date: 20080405
  Serious: Yes (Death, Other)
  Sender: FDA-Public Use
  Company Number: JP-AVENTIS-200712838JP

PATIENT
  Sex: Male

DRUGS (2)
  1. TAXOTERE [Suspect]
     Route: 041
  2. RANDA [Concomitant]

REACTIONS (3)
  - BLOOD CHLORIDE DECREASED [None]
  - HYPONATRAEMIA [None]
  - LUNG NEOPLASM MALIGNANT [None]
